FAERS Safety Report 6471273-9 (Version None)
Quarter: 2009Q4

REPORT INFORMATION
  Report Type: 
  Country: None (occurrence: None)
  Receive Date: 20091203
  Receipt Date: 20080530
  Transmission Date: 20100525
  Serious: Yes (Other)
  Sender: FDA-Public Use
  Company Number: GB-ELI_LILLY_AND_COMPANY-GB200802001932

PATIENT
  Sex: Female

DRUGS (1)
  1. FLUOXETINE [Suspect]
     Dosage: 20 MG, DAILY (1/D)
     Route: 064
     Dates: end: 20070911

REACTIONS (4)
  - DRUG EXPOSURE DURING PREGNANCY [None]
  - FLUSHING [None]
  - HYPERHIDROSIS [None]
  - WITHDRAWAL SYNDROME [None]
